FAERS Safety Report 5938561-3 (Version None)
Quarter: 2008Q4

REPORT INFORMATION
  Report Type: 
  Country: None (occurrence: None)
  Receive Date: 20081103
  Receipt Date: 20081027
  Transmission Date: 20090506
  Serious: Yes (Other)
  Sender: FDA-Public Use
  Company Number: PHBS2008GB06143

PATIENT
  Age: 10 Year

DRUGS (5)
  1. CYCLOSPORINE [Suspect]
     Indication: BONE MARROW TRANSPLANT
     Dosage: 5 MG/KG/DAY
     Route: 065
  2. TREOSULFAN [Suspect]
     Indication: BONE MARROW TRANSPLANT
     Dosage: 12 G/M2 ON DAYS -6, -5 AND -4
     Route: 042
  3. CYCLOPHOSPHAMIDE [Suspect]
     Indication: BONE MARROW TRANSPLANT
     Route: 042
  4. ANTI-THYMOCYTE GLOBULIN NOS [Suspect]
     Indication: BONE MARROW TRANSPLANT
     Dosage: 1 MG/KG
  5. METHOTREXATE [Suspect]
     Indication: BONE MARROW TRANSPLANT
     Dosage: 10 MG/M2 ON DAYS +3, +6, +11

REACTIONS (2)
  - MUCOSAL INFLAMMATION [None]
  - TOXIC ENCEPHALOPATHY [None]
